FAERS Safety Report 23775127 (Version 1)
Quarter: 2024Q2

REPORT INFORMATION
  Report Type: Spontaneous
  Country: KR (occurrence: KR)
  Receive Date: 20240423
  Receipt Date: 20240423
  Transmission Date: 20240715
  Serious: Yes (Death, Other)
  Sender: FDA-Public Use
  Company Number: KR-AMGEN-KORSP2024078620

PATIENT

DRUGS (3)
  1. PROLIA [Suspect]
     Active Substance: DENOSUMAB
     Indication: Osteoporosis
     Dosage: 60 MILLIGRAM/1 ML
     Route: 058
  2. CALCIUM [Concomitant]
     Active Substance: CALCIUM
     Indication: Supplementation therapy
     Dosage: UNK UNK, QD (1000-1500 MG)
     Route: 048
  3. VITAMIN D [Concomitant]
     Active Substance: VITAMIN D NOS
     Indication: Supplementation therapy
     Dosage: UNK (400-1200 IU)
     Route: 065

REACTIONS (6)
  - Cerebrovascular accident [Fatal]
  - Hepatic cirrhosis [Fatal]
  - Neoplasm malignant [Unknown]
  - Spinal compression fracture [Unknown]
  - Osteoporotic fracture [Unknown]
  - Flatulence [Unknown]
